FAERS Safety Report 9714604 (Version 1)
Quarter: 2013Q4

REPORT INFORMATION
  Report Type: Spontaneous
  Country: GB (occurrence: None)
  Receive Date: 20131125
  Receipt Date: 20131125
  Transmission Date: 20140711
  Serious: Yes (Other)
  Sender: FDA-Public Use
  Company Number: 1283944

PATIENT
  Age: 73 Year
  Sex: Female
  Weight: 75.75 kg

DRUGS (2)
  1. TAMOXIFEN [Suspect]
     Indication: BREAST CANCER
     Route: 048
  2. AMITRIPTYLINE [Concomitant]

REACTIONS (5)
  - Migraine with aura [None]
  - Amnesia [None]
  - Vulvovaginal pruritus [None]
  - Condition aggravated [None]
  - Feeling abnormal [None]
